FAERS Safety Report 20521233 (Version 2)
Quarter: 2022Q1

REPORT INFORMATION
  Report Type: Spontaneous
  Country: IL (occurrence: IL)
  Receive Date: 20220226
  Receipt Date: 20220328
  Transmission Date: 20220423
  Serious: Yes (Death, Hospitalization)
  Sender: FDA-Public Use
  Company Number: IL-NOVARTISPH-NVSC2022IL044150

PATIENT
  Age: 12 Year
  Sex: Female

DRUGS (2)
  1. CAPMATINIB [Suspect]
     Active Substance: CAPMATINIB
     Indication: Clear cell sarcoma of soft tissue
     Dosage: 150 MG, BID
     Route: 065
     Dates: start: 20220103, end: 20220130
  2. LEVOTHYROXINE [Concomitant]
     Active Substance: LEVOTHYROXINE
     Indication: Product used for unknown indication
     Dosage: 75 MG, QD
     Route: 065

REACTIONS (2)
  - Clear cell sarcoma of soft tissue [Fatal]
  - Product use in unapproved indication [Unknown]
